FAERS Safety Report 14200227 (Version 2)
Quarter: 2018Q1

REPORT INFORMATION
  Report Type: Spontaneous
  Country: IT (occurrence: IT)
  Receive Date: 20171117
  Receipt Date: 20180201
  Transmission Date: 20180508
  Serious: Yes (Other)
  Sender: FDA-Public Use
  Company Number: IT-PFIZER INC-2017491430

PATIENT
  Age: 47 Year
  Sex: Male

DRUGS (2)
  1. IFOSFAMIDE. [Suspect]
     Active Substance: IFOSFAMIDE
     Indication: NERVOUS SYSTEM NEOPLASM
     Dosage: 1 DF, CYCLIC
     Route: 042
     Dates: start: 20171103
  2. DOXORUBICIN HCL [Suspect]
     Active Substance: DOXORUBICIN HYDROCHLORIDE
     Indication: NERVOUS SYSTEM NEOPLASM
     Dosage: 1 DF, CYCLIC
     Route: 042
     Dates: start: 20171103

REACTIONS (2)
  - Anaemia [Unknown]
  - Lymphopenia [Unknown]

NARRATIVE: CASE EVENT DATE: 20171110
